FAERS Safety Report 15048276 (Version 1)
Quarter: 2018Q2

REPORT INFORMATION
  Report Type: Spontaneous
  Country: US (occurrence: US)
  Receive Date: 20180622
  Receipt Date: 20180622
  Transmission Date: 20180711
  Serious: No
  Sender: FDA-Public Use
  Company Number: US-TEVA-2018-US-906713

PATIENT
  Age: 67 Year
  Sex: Female

DRUGS (1)
  1. OCTREOTIDE. [Suspect]
     Active Substance: OCTREOTIDE
     Route: 065
     Dates: start: 20171007

REACTIONS (11)
  - Swelling [Unknown]
  - Blood heavy metal increased [Unknown]
  - Musculoskeletal stiffness [Unknown]
  - Arthralgia [Unknown]
  - Alopecia [Unknown]
  - Hair colour changes [Unknown]
  - Impaired driving ability [Unknown]
  - Injection site pain [Unknown]
  - Myalgia [Unknown]
  - Pain [Unknown]
  - Drug dose omission [Unknown]

NARRATIVE: CASE EVENT DATE: 20180507
